FAERS Safety Report 18158275 (Version 1)
Quarter: 2020Q3

REPORT INFORMATION
  Report Type: Spontaneous
  Country: US (occurrence: US)
  Receive Date: 20200817
  Receipt Date: 20200817
  Transmission Date: 20201103
  Serious: No
  Sender: FDA-Public Use
  Company Number: US-THERAPEUTICSMD-2020TMD02951

PATIENT
  Age: 40 Year
  Sex: Female

DRUGS (1)
  1. BIJUVA [Suspect]
     Active Substance: ESTRADIOL\PROGESTERONE
     Indication: HORMONE LEVEL ABNORMAL
     Dosage: 1 1/100 MG CAPSULE, 1X/DAY
     Route: 048
     Dates: start: 202003

REACTIONS (2)
  - Product package associated injury [Not Recovered/Not Resolved]
  - Nail bed bleeding [Recovered/Resolved]

NARRATIVE: CASE EVENT DATE: 202005
